FAERS Safety Report 6990407-0 (Version None)
Quarter: 2010Q3

REPORT INFORMATION
  Report Type: 
  Country: None (occurrence: None)
  Receive Date: 20100916
  Receipt Date: 20100616
  Transmission Date: 20110219
  Serious: Yes (Other)
  Sender: FDA-Public Use
  Company Number: US-PFIZER INC-2010075415

PATIENT
  Sex: Female

DRUGS (3)
  1. LYRICA [Suspect]
     Indication: FIBROMYALGIA
     Dosage: 300 MG, DAILY
  2. LYRICA [Interacting]
     Dosage: 150 MG, DAILY
  3. CYMBALTA [Interacting]
     Indication: DEPRESSION
     Dosage: UNK

REACTIONS (3)
  - DEPRESSION [None]
  - DRUG INTERACTION [None]
  - FIBROMYALGIA [None]
